FAERS Safety Report 15805979 (Version 2)
Quarter: 2019Q2

REPORT INFORMATION
  Report Type: Report from Study
  Country: CA (occurrence: CA)
  Receive Date: 20190110
  Receipt Date: 20190416
  Transmission Date: 20190711
  Serious: Yes (Hospitalization, Other)
  Sender: FDA-Public Use
  Company Number: CA-ROCHE-2242217

PATIENT
  Age: 49 Year
  Sex: Female
  Weight: 103 kg

DRUGS (9)
  1. HYDROCHLOROTHIAZIDE. [Concomitant]
     Active Substance: HYDROCHLOROTHIAZIDE
  2. FOLIC ACID. [Concomitant]
     Active Substance: FOLIC ACID
  3. ACTEMRA [Suspect]
     Active Substance: TOCILIZUMAB
     Indication: RHEUMATOID ARTHRITIS
     Route: 042
     Dates: start: 20111018
  4. METHOTREXATE. [Concomitant]
     Active Substance: METHOTREXATE
  5. ELTROXIN [Concomitant]
     Active Substance: LEVOTHYROXINE
  6. PREDNISONE. [Concomitant]
     Active Substance: PREDNISONE
  7. ACTEMRA [Suspect]
     Active Substance: TOCILIZUMAB
     Indication: RHEUMATOID ARTHRITIS
     Dosage: SUSPENDED
     Route: 058
     Dates: start: 20140810
  8. ACTEMRA [Suspect]
     Active Substance: TOCILIZUMAB
     Route: 042
     Dates: start: 20130404, end: 20140715
  9. CO-METFORMIN [Concomitant]

REACTIONS (3)
  - Pneumothorax [Unknown]
  - Lung abscess [Unknown]
  - Pneumonia [Unknown]

NARRATIVE: CASE EVENT DATE: 201808
